FAERS Safety Report 13442866 (Version 1)
Quarter: 2017Q2

REPORT INFORMATION
  Report Type: Spontaneous
  Country: IN (occurrence: IN)
  Receive Date: 20170414
  Receipt Date: 20170414
  Transmission Date: 20170830
  Serious: Yes (Other)
  Sender: FDA-Public Use
  Company Number: IN-009507513-1704IND006201

PATIENT
  Age: 25 Year
  Sex: Male

DRUGS (8)
  1. CISPLATIN. [Concomitant]
     Active Substance: CISPLATIN
     Indication: B-CELL LYMPHOMA
     Dosage: 100 MG/M2, QD, DAY 1 ON DHAP REGIMEN
  2. PREDNISOLONE. [Concomitant]
     Active Substance: PREDNISOLONE
     Indication: B-CELL LYMPHOMA
     Dosage: 40 MG, QD, DAY 2-4 DHAP REGIMEN
     Route: 048
  3. IFOSFAMIDE. [Interacting]
     Active Substance: IFOSFAMIDE
     Indication: B-CELL LYMPHOMA
     Dosage: 4 G/M2 DIVIDED OVER 3 DAYS, DAY 1-3 OF MINE PROTOCOL
     Route: 042
  4. MESNA. [Concomitant]
     Active Substance: MESNA
     Indication: B-CELL LYMPHOMA
     Dosage: 1330 MG/M2, DAYS 1-3 OF MINE PROTOCOL
  5. MITOXANTRONE HYDROCHLORIDE. [Concomitant]
     Active Substance: MITOXANTRONE HYDROCHLORIDE
     Indication: B-CELL LYMPHOMA
     Dosage: 8 MG/M2, QD, DAY 1 OF MINE PROTOCOL
     Route: 042
  6. ETOPOSIDE. [Concomitant]
     Active Substance: ETOPOSIDE
     Indication: B-CELL LYMPHOMA
     Dosage: 65 MG/M2, QD, DAYS 1-3 OF MINE PROTOCOL
  7. CYTARABINE. [Concomitant]
     Active Substance: CYTARABINE
     Indication: B-CELL LYMPHOMA
     Dosage: 2 G/M2, DAY 2 OF DHAP REGIMEN
  8. FOSAPREPITANT DIMEGLUMINE [Suspect]
     Active Substance: FOSAPREPITANT DIMEGLUMINE
     Indication: PROPHYLAXIS OF NAUSEA AND VOMITING
     Dosage: UNK

REACTIONS (2)
  - Toxic encephalopathy [Recovered/Resolved]
  - Drug interaction [Recovered/Resolved]
